FAERS Safety Report 5118788-3 (Version None)
Quarter: 2006Q4

REPORT INFORMATION
  Report Type: 
  Country: None (occurrence: None)
  Receive Date: 20061002
  Receipt Date: 20060918
  Transmission Date: 20070319
  Serious: Yes (Other)
  Sender: FDA-Public Use
  Company Number: GB-ROCHE-464156

PATIENT
  Sex: Female

DRUGS (3)
  1. XENICAL [Suspect]
     Indication: OBESITY
     Route: 048
  2. REBOXETINE [Concomitant]
     Route: 048
  3. ARIPIPRAZOLE [Concomitant]
     Route: 048

REACTIONS (1)
  - SCHIZOPHRENIA [None]
